FAERS Safety Report 7555728-1 (Version None)
Quarter: 2011Q2

REPORT INFORMATION
  Report Type: 
  Country: None (occurrence: None)
  Receive Date: 20110617
  Receipt Date: 20110606
  Transmission Date: 20111010
  Serious: Yes (Hospitalization)
  Sender: FDA-Public Use
  Company Number: NL-GENENTECH-308783

PATIENT
  Sex: Male
  Weight: 82 kg

DRUGS (43)
  1. PREDNISONE [Suspect]
     Dosage: 100 MG, UNK
     Route: 048
     Dates: start: 20101221
  2. CYCLOPHOSPHAMIDE [Suspect]
     Dosage: 1180 MG, UNK
     Route: 042
     Dates: start: 20110201
  3. DOXORUBICIN HCL [Suspect]
     Indication: DIFFUSE LARGE B-CELL LYMPHOMA
     Dosage: 110 MG, UNK
     Route: 042
     Dates: start: 20100927
  4. DOXORUBICIN HCL [Suspect]
     Dosage: 100 MG, UNK
     Route: 042
     Dates: start: 20101130
  5. VINCRISTINE [Suspect]
     Dosage: 2 MG, UNK
     Route: 042
     Dates: start: 20101130
  6. NEUPOGEN [Suspect]
     Indication: DIFFUSE LARGE B-CELL LYMPHOMA
     Dosage: 6 MG, UNK
     Route: 058
     Dates: start: 20100928
  7. PREDNISONE [Suspect]
     Indication: DIFFUSE LARGE B-CELL LYMPHOMA
     Dosage: 100 MG, UNK
     Route: 048
     Dates: start: 20100927
  8. DOXORUBICIN HCL [Suspect]
     Dosage: 105 MG, UNK
     Route: 042
     Dates: start: 20101116
  9. DOXORUBICIN HCL [Suspect]
     Dosage: 79 MG, UNK
     Route: 042
     Dates: start: 20101221
  10. VINCRISTINE [Suspect]
     Dosage: 2 MG, UNK
     Route: 042
     Dates: start: 20101116
  11. CYCLOPHOSPHAMIDE [Suspect]
     Dosage: 1500 MG, UNK
     Route: 042
     Dates: start: 20101130
  12. CYCLOPHOSPHAMIDE [Suspect]
     Dosage: 1180 MG, UNK
     Route: 042
     Dates: start: 20101221
  13. CYCLOPHOSPHAMIDE [Suspect]
     Route: 042
  14. DOXORUBICIN HCL [Suspect]
     Dosage: 105 MG, UNK
     Route: 042
     Dates: start: 20101011
  15. DOXORUBICIN HCL [Suspect]
     Dosage: 79 MG, UNK
     Route: 042
     Dates: start: 20110110
  16. DOXORUBICIN HCL [Suspect]
     Dosage: 79 MG, UNK
     Route: 042
     Dates: start: 20110201
  17. VINCRISTINE [Suspect]
     Dosage: 2 MG, UNK
     Route: 042
     Dates: start: 20101221
  18. RITUXIMAB [Suspect]
     Dosage: 750 MG, UNK
     Route: 042
     Dates: start: 20110110
  19. RITUXIMAB [Suspect]
     Dosage: 750 MG, UNK
     Route: 042
     Dates: start: 20110201
  20. PREDNISONE [Suspect]
     Dosage: 10 MG, UNK
     Route: 048
     Dates: start: 20101116
  21. PREDNISONE [Suspect]
     Dosage: 100 MG, UNK
     Route: 048
     Dates: start: 20100110
  22. PREDNISONE [Suspect]
     Route: 048
  23. CYCLOPHOSPHAMIDE [Suspect]
     Indication: DIFFUSE LARGE B-CELL LYMPHOMA
     Dosage: 1650 MG, UNK
     Route: 042
     Dates: start: 20100927
  24. CYCLOPHOSPHAMIDE [Suspect]
     Dosage: 1575 MG, UNK
     Route: 042
     Dates: start: 20101011
  25. CYCLOPHOSPHAMIDE [Suspect]
     Dosage: 1180 MG, UNK
     Route: 042
     Dates: start: 20110110
  26. NEUPOGEN [Suspect]
     Dosage: 6 MG, UNK
     Route: 058
     Dates: start: 20110111
  27. CIPROFLOXACIN [Concomitant]
     Indication: PROPHYLAXIS
     Dosage: 500 MG, BID
     Route: 048
     Dates: start: 20110110
  28. RITUXIMAB [Suspect]
     Dosage: 750 MG, UNK
     Route: 042
     Dates: start: 20101130
  29. PREDNISONE [Suspect]
     Dosage: 100 MG, UNK
     Route: 048
     Dates: start: 20110201
  30. NEUPOGEN [Suspect]
     Dosage: 6 MG, UNK
     Route: 058
     Dates: start: 20101117
  31. BIOCLAVID [Concomitant]
     Indication: PROPHYLAXIS
     Dosage: 625 MG, UNK
     Route: 048
     Dates: start: 20110110
  32. RITUXIMAB [Suspect]
     Dosage: 750 MG, UNK
     Route: 042
     Dates: start: 20101116
  33. RITUXIMAB [Suspect]
     Dosage: 750 MG, UNK
     Route: 042
     Dates: start: 20101221
  34. CYCLOPHOSPHAMIDE [Suspect]
     Dosage: 1575 MG, UNK
     Route: 042
     Dates: start: 20101116
  35. VINCRISTINE [Suspect]
     Indication: DIFFUSE LARGE B-CELL LYMPHOMA
     Dosage: 2 MG, UNK
     Route: 042
     Dates: start: 20100927
  36. RITUXIMAB [Suspect]
     Indication: DIFFUSE LARGE B-CELL LYMPHOMA
     Dosage: 750 MG, UNK
     Route: 042
     Dates: start: 20100927
  37. DOXORUBICIN HCL [Suspect]
     Route: 042
  38. VINCRISTINE [Suspect]
     Dosage: 2 MG, UNK
     Route: 042
     Dates: start: 20110201
  39. NEUPOGEN [Suspect]
     Dosage: 6 MG, UNK
     Route: 058
     Dates: start: 20101201
  40. NEUPOGEN [Suspect]
     Dosage: 6 MG, UNK
     Route: 058
     Dates: start: 20101221
  41. PREDNISONE [Suspect]
     Dosage: 100 MG, UNK
     Route: 048
     Dates: start: 20101130
  42. VINCRISTINE [Suspect]
     Dosage: 2 MG, UNK
     Route: 042
     Dates: start: 20110110
  43. NEUPOGEN [Suspect]
     Dosage: 6 MG, UNK
     Route: 058
     Dates: start: 20110202

REACTIONS (3)
  - PLEURAL EFFUSION [None]
  - INFECTION [None]
  - FEBRILE NEUTROPENIA [None]
